FAERS Safety Report 5091259-9 (Version None)
Quarter: 2006Q3

REPORT INFORMATION
  Report Type: 
  Country: None (occurrence: None)
  Receive Date: 20060829
  Receipt Date: 20060821
  Transmission Date: 20061208
  Serious: Yes (Hospitalization)
  Sender: FDA-Public Use
  Company Number: FR-BRISTOL-MYERS SQUIBB COMPANY-13484605

PATIENT
  Age: 46 Year
  Sex: Male

DRUGS (5)
  1. MUCOMYST [Suspect]
     Dates: start: 20060707, end: 20060717
  2. FLAGYL I.V. [Suspect]
     Dates: start: 20060707, end: 20060717
  3. KETEK [Suspect]
     Dates: start: 20060707, end: 20060717
  4. SOLUPRED [Suspect]
     Dates: start: 20060707, end: 20060715
  5. BECONASE [Suspect]
     Indication: CHRONIC SINUSITIS
     Dates: start: 20060707, end: 20060722

REACTIONS (1)
  - PANCREATITIS ACUTE [None]
